FAERS Safety Report 4839608-8 (Version None)
Quarter: 2005Q4

REPORT INFORMATION
  Report Type: 
  Country: None (occurrence: None)
  Receive Date: 20051125
  Receipt Date: 20051111
  Transmission Date: 20060501
  Serious: Yes (Hospitalization)
  Sender: FDA-Public Use
  Company Number: 2005P1000555

PATIENT
  Age: 73 Year
  Sex: Male
  Weight: 75 kg

DRUGS (3)
  1. RETEPLASE (RETEPLASE) [Suspect]
     Indication: ACUTE MYOCARDIAL INFARCTION
     Dosage: 5 IU;X1;IV
     Route: 042
     Dates: start: 20051101, end: 20051101
  2. ABCIXIMAB (ABCIXIMAB) [Suspect]
     Indication: ACUTE MYOCARDIAL INFARCTION
     Dosage: 3.8 ML;QH;IV
     Route: 042
     Dates: start: 20051101, end: 20051101
  3. ACE INHIBITOR NOS [Concomitant]

REACTIONS (3)
  - BLOOD GLUCOSE INCREASED [None]
  - HIGH DENSITY LIPOPROTEIN INCREASED [None]
  - MYOCARDIAL INFARCTION [None]
